FAERS Safety Report 5188297-4 (Version None)
Quarter: 2006Q4

REPORT INFORMATION
  Report Type: 
  Country: None (occurrence: None)
  Receive Date: 20061214
  Receipt Date: 20061128
  Transmission Date: 20070319
  Serious: Yes (Hospitalization)
  Sender: FDA-Public Use
  Company Number: 150702ISR

PATIENT
  Age: 68 Year
  Sex: Male

DRUGS (3)
  1. SIMVASTATIN [Suspect]
     Dosage: 20 MG (20 MG)
     Route: 048
     Dates: start: 20040118
  2. METOPROLOL SUCCINATE [Suspect]
     Dosage: 50 MG
     Dates: start: 20050116
  3. PERINDOPRIL ERBUMINE [Suspect]
     Indication: HYPERTENSION
     Dosage: 4 MG (4 MG, 1 IN 1 D)
     Dates: start: 20050116

REACTIONS (1)
  - PLEURISY [None]
